FAERS Safety Report 9060376 (Version 2)
Quarter: 2013Q2

REPORT INFORMATION
  Report Type: Spontaneous
  Country: IE (occurrence: IE)
  Receive Date: 20130212
  Receipt Date: 20130403
  Transmission Date: 20140414
  Serious: No
  Sender: FDA-Public Use
  Company Number: IE-ASTRAZENECA-2013SE09259

PATIENT
  Age: 7 Month
  Sex: Male

DRUGS (3)
  1. SYNAGIS [Suspect]
     Indication: ANTIVIRAL PROPHYLAXIS
     Route: 030
     Dates: start: 20121031, end: 20121031
  2. SYNAGIS [Suspect]
     Indication: ANTIVIRAL PROPHYLAXIS
     Dosage: 1.06 ML, 15 MG/KG MONTHLY
     Route: 030
     Dates: start: 20121129, end: 20121129
  3. SYNAGIS [Suspect]
     Indication: ANTIVIRAL PROPHYLAXIS
     Dosage: 1.14 ML, 15 MG/KG MONTHLY
     Route: 030
     Dates: start: 20130102

REACTIONS (3)
  - Viral infection [Recovered/Resolved]
  - Cough [Recovered/Resolved]
  - Crying [Unknown]
